FAERS Safety Report 16350708 (Version 3)
Quarter: 2020Q3

REPORT INFORMATION
  Report Type: Spontaneous
  Country: US (occurrence: US)
  Receive Date: 20190524
  Receipt Date: 20200807
  Transmission Date: 20201102
  Serious: Yes (Hospitalization, Other)
  Sender: FDA-Public Use
  Company Number: US-GILEAD-2019-0409332

PATIENT
  Age: 44 Year
  Sex: Male

DRUGS (49)
  1. REYATAZ [Concomitant]
     Active Substance: ATAZANAVIR SULFATE
  2. VIRAMUNE [Concomitant]
     Active Substance: NEVIRAPINE
  3. VITAMIN B12 [Concomitant]
     Active Substance: CYANOCOBALAMIN
  4. MUCINEX [Concomitant]
     Active Substance: GUAIFENESIN
  5. RHINOCORT AQUA [Concomitant]
     Active Substance: BUDESONIDE
  6. LEVOFLOXACIN. [Concomitant]
     Active Substance: LEVOFLOXACIN
  7. VENTOLIN HFA [Concomitant]
     Active Substance: ALBUTEROL SULFATE
  8. MEGACE [Concomitant]
     Active Substance: MEGESTROL ACETATE
  9. LEXIVA [Concomitant]
     Active Substance: FOSAMPRENAVIR CALCIUM
  10. INVIRASE [Concomitant]
     Active Substance: SAQUINAVIR MESYLATE
  11. ZANAFLEX [Concomitant]
     Active Substance: TIZANIDINE HYDROCHLORIDE
  12. NAPRELAN [Concomitant]
     Active Substance: NAPROXEN SODIUM
  13. TENORMIN [Concomitant]
     Active Substance: ATENOLOL
  14. ZYRTEC [Concomitant]
     Active Substance: CETIRIZINE HYDROCHLORIDE
  15. DOXYCYCLINE. [Concomitant]
     Active Substance: DOXYCYCLINE
  16. ZITHROMAX [Concomitant]
     Active Substance: AZITHROMYCIN DIHYDRATE
  17. NAPROSYN [Concomitant]
     Active Substance: NAPROXEN
  18. MIRTAZAPINE. [Concomitant]
     Active Substance: MIRTAZAPINE
  19. NEXIUM [Concomitant]
     Active Substance: ESOMEPRAZOLE MAGNESIUM
  20. VIREAD [Suspect]
     Active Substance: TENOFOVIR DISOPROXIL FUMARATE
     Indication: HIV INFECTION
     Dosage: UNK
     Route: 048
     Dates: start: 2009, end: 2011
  21. STRIBILD [Suspect]
     Active Substance: COBICISTAT\ELVITEGRAVIR\EMTRICITABINE\TENOFOVIR DISOPROXIL FUMARATE
     Indication: HIV INFECTION
     Dosage: UNK
     Route: 048
     Dates: start: 2015, end: 201707
  22. GENVOYA [Concomitant]
     Active Substance: COBICISTAT\ELVITEGRAVIR\EMTRICITABINE\TENOFOVIR ALAFENAMIDE FUMARATE
     Indication: HIV INFECTION
     Dosage: 1 DOSAGE FORM (150?150?200?10 MG), QD
     Route: 048
  23. ISENTRESS [Concomitant]
     Active Substance: RALTEGRAVIR POTASSIUM
  24. PRILOSEC [Concomitant]
     Active Substance: OMEPRAZOLE MAGNESIUM
  25. NORCO [Concomitant]
     Active Substance: ACETAMINOPHEN\HYDROCODONE BITARTRATE
  26. NASALIDE [Concomitant]
     Active Substance: FLUNISOLIDE
  27. CYCLOBENZAPRINE. [Concomitant]
     Active Substance: CYCLOBENZAPRINE
  28. TRUVADA [Suspect]
     Active Substance: EMTRICITABINE\TENOFOVIR DISOPROXIL FUMARATE
     Indication: HIV INFECTION
     Dosage: UNK
     Route: 065
     Dates: start: 2011, end: 2015
  29. EMTRIVA [Concomitant]
     Active Substance: EMTRICITABINE
  30. KALETRA [Concomitant]
     Active Substance: LOPINAVIR\RITONAVIR
  31. COMBIVIR [Concomitant]
     Active Substance: LAMIVUDINE\ZIDOVUDINE
  32. EPZICOM [Concomitant]
     Active Substance: ABACAVIR SULFATE\LAMIVUDINE
  33. SUSTIVA [Concomitant]
     Active Substance: EFAVIRENZ
  34. SILENOR [Concomitant]
     Active Substance: DOXEPIN HYDROCHLORIDE
  35. NORVIR [Concomitant]
     Active Substance: RITONAVIR
  36. EPIVIR [Concomitant]
     Active Substance: LAMIVUDINE
  37. VICODIN [Concomitant]
     Active Substance: ACETAMINOPHEN\HYDROCODONE BITARTRATE
  38. LASIX [Concomitant]
     Active Substance: FUROSEMIDE
  39. NEURONTIN [Concomitant]
     Active Substance: GABAPENTIN
  40. IMODIUM [Concomitant]
     Active Substance: LOPERAMIDE HYDROCHLORIDE
  41. IBUPROFEN. [Concomitant]
     Active Substance: IBUPROFEN
  42. NICODERM CQ [Concomitant]
     Active Substance: NICOTINE
  43. PREZISTA [Concomitant]
     Active Substance: DARUNAVIR ETHANOLATE
  44. AUGMENTIN [Concomitant]
     Active Substance: AMOXICILLIN\CLAVULANATE POTASSIUM
  45. PROAIR HFA [Concomitant]
     Active Substance: ALBUTEROL SULFATE
  46. NASONEX [Concomitant]
     Active Substance: MOMETASONE FUROATE
  47. VALTREX [Concomitant]
     Active Substance: VALACYCLOVIR HYDROCHLORIDE
  48. LEVOTHYROXINE. [Concomitant]
     Active Substance: LEVOTHYROXINE
  49. ROPINIROLE. [Concomitant]
     Active Substance: ROPINIROLE

REACTIONS (10)
  - Bone density decreased [Unknown]
  - Anhedonia [Not Recovered/Not Resolved]
  - Spinal fracture [Not Recovered/Not Resolved]
  - Pain [Not Recovered/Not Resolved]
  - Chronic kidney disease [Not Recovered/Not Resolved]
  - Emotional distress [Not Recovered/Not Resolved]
  - Anxiety [Not Recovered/Not Resolved]
  - Economic problem [Not Recovered/Not Resolved]
  - Renal failure [Not Recovered/Not Resolved]
  - Osteoporosis [Not Recovered/Not Resolved]

NARRATIVE: CASE EVENT DATE: 201503
